FAERS Safety Report 24251245 (Version 1)
Quarter: 2024Q3

REPORT INFORMATION
  Report Type: Spontaneous
  Country: US (occurrence: US)
  Receive Date: 20240826
  Receipt Date: 20240826
  Transmission Date: 20241017
  Serious: Yes (Other)
  Sender: Harrow Health
  Company Number: US-IMP-2024000631

PATIENT
  Age: 33 Year
  Sex: Female
  Weight: 154 kg

DRUGS (3)
  1. FLAREX [Suspect]
     Active Substance: FLUOROMETHOLONE ACETATE
     Indication: Hypersensitivity
     Dosage: 2 DROPS 4X A DAY
     Route: 047
     Dates: start: 20240726, end: 20240727
  2. CEQUA [Concomitant]
     Active Substance: CYCLOSPORINE
     Indication: Product used for unknown indication
     Route: 065
  3. ERYTHROMYCIN [Concomitant]
     Active Substance: ERYTHROMYCIN
     Indication: Product used for unknown indication
     Route: 065

REACTIONS (5)
  - Blindness [Recovering/Resolving]
  - Visual impairment [Recovering/Resolving]
  - Dry eye [Recovering/Resolving]
  - Photophobia [Not Recovered/Not Resolved]
  - Asthenopia [Not Recovered/Not Resolved]

NARRATIVE: CASE EVENT DATE: 20240701
